FAERS Safety Report 9542060 (Version 1)
Quarter: 2013Q3

REPORT INFORMATION
  Report Type: Spontaneous
  Country: US (occurrence: US)
  Receive Date: 20130923
  Receipt Date: 20130923
  Transmission Date: 20140515
  Serious: No
  Sender: FDA-Public Use
  Company Number: US-009507513-1309USA008502

PATIENT
  Sex: Male

DRUGS (1)
  1. LIPTRUZET [Suspect]
     Indication: BLOOD CHOLESTEROL INCREASED
     Dosage: 10/20 MG, ONCE DAILY
     Route: 048
     Dates: end: 20130913

REACTIONS (1)
  - Swelling [Recovered/Resolved]
